FAERS Safety Report 18713425 (Version 7)
Quarter: 2021Q3

REPORT INFORMATION
  Report Type: Report from Study
  Country: GB (occurrence: GB)
  Receive Date: 20210107
  Receipt Date: 20210803
  Transmission Date: 20211014
  Serious: Yes (Hospitalization)
  Sender: FDA-Public Use
  Company Number: NVSC2020GB347481

PATIENT
  Age: 58 Year
  Sex: Female

DRUGS (4)
  1. SANDOSTATIN LAR DEPOT [Suspect]
     Active Substance: OCTREOTIDE ACETATE
     Dosage: 30 MG, Q2W (EVERY 2 WEEKS OFF LICENSE)
     Route: 030
     Dates: start: 20201105
  2. SANDOSTATIN LAR DEPOT [Suspect]
     Active Substance: OCTREOTIDE ACETATE
     Dosage: 30 MG, Q2W  (EVERY 2 WEEKS OFF LICENSE)
     Route: 030
     Dates: start: 20201117
  3. SANDOSTATIN LAR DEPOT [Suspect]
     Active Substance: OCTREOTIDE ACETATE
     Indication: NEUROENDOCRINE TUMOUR
     Dosage: 30 MG, Q2W (EVERY 2 WEEKS OFF LICENSE)
     Route: 030
     Dates: start: 2009
  4. SANDOSTATIN LAR DEPOT [Suspect]
     Active Substance: OCTREOTIDE ACETATE
     Dosage: 30 MG, Q2W, (ONCE EVERY TWO WEEKS)
     Route: 065
     Dates: start: 20091101

REACTIONS (14)
  - Swelling face [Unknown]
  - Eye swelling [Unknown]
  - Peripheral swelling [Not Recovered/Not Resolved]
  - Inappropriate schedule of product administration [Unknown]
  - Weight decreased [Unknown]
  - Abdominal pain upper [Unknown]
  - Flushing [Unknown]
  - Gastric pH decreased [Recovered/Resolved]
  - Vomiting [Unknown]
  - Hypersensitivity [Unknown]
  - Device placement issue [Unknown]
  - Lip swelling [Unknown]
  - Abdominal pain [Recovering/Resolving]
  - Hot flush [Unknown]

NARRATIVE: CASE EVENT DATE: 20201216
